FAERS Safety Report 25674409 (Version 7)
Quarter: 2025Q4

REPORT INFORMATION
  Report Type: Spontaneous
  Country: JP (occurrence: JP)
  Receive Date: 20250813
  Receipt Date: 20251121
  Transmission Date: 20260117
  Serious: Yes (Hospitalization, Other)
  Sender: GLAXOSMITHKLINE
  Company Number: JP-GSK-JP2025JPN101454

PATIENT
  Age: 52 Year
  Sex: Female
  Weight: 62.7 kg

DRUGS (8)
  1. MOMELOTINIB [Suspect]
     Active Substance: MOMELOTINIB
     Indication: Myelofibrosis
     Dosage: 200 MG, 1D
  2. MOMELOTINIB [Suspect]
     Active Substance: MOMELOTINIB
     Dosage: 300 MG
  3. MOMELOTINIB [Suspect]
     Active Substance: MOMELOTINIB
     Dosage: 100 MG, QD
  4. AMLODIPINE BESYLATE [Concomitant]
     Active Substance: AMLODIPINE BESYLATE
     Dosage: UNK
  5. AZILSARTAN KAMEDOXOMIL [Concomitant]
     Active Substance: AZILSARTAN KAMEDOXOMIL
     Dosage: UNK
  6. ACYCLOVIR [Concomitant]
     Active Substance: ACYCLOVIR
     Dosage: UNK
  7. SULFAMETHOXAZOLE\TRIMETHOPRIM [Concomitant]
     Active Substance: SULFAMETHOXAZOLE\TRIMETHOPRIM
     Dosage: UNK
  8. RUXOLITINIB PHOSPHATE [Concomitant]
     Active Substance: RUXOLITINIB PHOSPHATE
     Indication: Myelofibrosis
     Dosage: UNK

REACTIONS (14)
  - Thrombocytopenia [Recovering/Resolving]
  - Myelofibrosis [Unknown]
  - Cytokine storm [Unknown]
  - Pneumonia [Recovering/Resolving]
  - Campylobacter gastroenteritis [Unknown]
  - Pyrexia [Unknown]
  - Diarrhoea [Unknown]
  - Cerebellar ataxia [Unknown]
  - Dyslalia [Unknown]
  - Balance disorder [Unknown]
  - Dyspnoea [Unknown]
  - Ataxia [Unknown]
  - Prescribed overdose [Unknown]
  - Off label use [Unknown]

NARRATIVE: CASE EVENT DATE: 20250601
